FAERS Safety Report 17621939 (Version 1)
Quarter: 2020Q2

REPORT INFORMATION
  Report Type: Spontaneous
  Country: US (occurrence: US)
  Receive Date: 20200402
  Receipt Date: 20200402
  Transmission Date: 20200713
  Serious: Yes (Death)
  Sender: FDA-Public Use
  Company Number: None

PATIENT
  Age: 60 Year
  Sex: Male

DRUGS (2)
  1. TAFINLAR [Suspect]
     Active Substance: DABRAFENIB MESYLATE
     Indication: GRANULOCYTOSIS
     Dosage: ?          OTHER FREQUENCY:BIDX30DAYS ;?
     Route: 048
     Dates: start: 20170210, end: 20200312
  2. MEKINIST [Suspect]
     Active Substance: TRAMETINIB DIMETHYL SULFOXIDE
     Indication: GRANULOCYTOSIS
     Dosage: ?          OTHER FREQUENCY:QDX30DAYS;?
     Route: 048
     Dates: start: 20170210, end: 20200312

REACTIONS (1)
  - Death [None]

NARRATIVE: CASE EVENT DATE: 20200312
